FAERS Safety Report 19330859 (Version 3)
Quarter: 2021Q4

REPORT INFORMATION
  Report Type: Spontaneous
  Country: GB (occurrence: None)
  Receive Date: 20210528
  Receipt Date: 20211223
  Transmission Date: 20220303
  Serious: Yes (Hospitalization, Disabling, Other)
  Sender: FDA-Public Use
  Company Number: 2021A470671

PATIENT
  Age: 21 Year
  Sex: Female
  Weight: 81 kg

DRUGS (12)
  1. QUETIAPINE [Suspect]
     Active Substance: QUETIAPINE
     Indication: Neuralgia
     Dosage: 75.0MG UNKNOWN
     Route: 048
     Dates: start: 20210326
  2. SERTRALINE [Concomitant]
     Active Substance: SERTRALINE HYDROCHLORIDE
     Indication: Depression
  3. SERTRALINE [Concomitant]
     Active Substance: SERTRALINE HYDROCHLORIDE
     Indication: Anxiety
  4. AMITRIPTYLINE [Concomitant]
     Active Substance: AMITRIPTYLINE
     Indication: Back pain
  5. AMITRIPTYLINE [Concomitant]
     Active Substance: AMITRIPTYLINE
     Indication: Sleep disorder
  6. CODEINE PHOSPHATE [Concomitant]
     Active Substance: CODEINE PHOSPHATE
     Indication: Back pain
  7. CODEINE PHOSPHATE [Concomitant]
     Active Substance: CODEINE PHOSPHATE
     Indication: Neuralgia
  8. ACETAMINOPHEN [Concomitant]
     Active Substance: ACETAMINOPHEN
     Indication: Back pain
  9. OMEPRAZOLE [Concomitant]
     Active Substance: OMEPRAZOLE
     Indication: Prophylaxis
  10. CHOLECALCIFEROL [Concomitant]
     Active Substance: CHOLECALCIFEROL
     Indication: Vitamin D deficiency
  11. LACTULOSE [Concomitant]
     Active Substance: LACTULOSE
     Indication: Constipation
  12. PREGABALIN [Concomitant]
     Active Substance: PREGABALIN
     Indication: Neuralgia

REACTIONS (12)
  - Loss of consciousness [Unknown]
  - Fibromyalgia [Unknown]
  - Amnesia [Recovered/Resolved with Sequelae]
  - Dyspnoea [Unknown]
  - Muscle twitching [Unknown]
  - Fatigue [Unknown]
  - Seizure [Not Recovered/Not Resolved]
  - Conversion disorder [Not Recovered/Not Resolved]
  - Paralysis [Recovering/Resolving]
  - Headache [Unknown]
  - Unresponsive to stimuli [Unknown]
  - Product use in unapproved indication [Unknown]

NARRATIVE: CASE EVENT DATE: 20210401
